FAERS Safety Report 17370956 (Version 1)
Quarter: 2020Q1

REPORT INFORMATION
  Report Type: Spontaneous
  Country: FR (occurrence: FR)
  Receive Date: 20200205
  Receipt Date: 20200205
  Transmission Date: 20200409
  Serious: Yes (Hospitalization)
  Sender: FDA-Public Use
  Company Number: FR-TEVA-2020-FR-1181039

PATIENT
  Age: 15 Year
  Sex: Male

DRUGS (1)
  1. DOXORUBICIN [Suspect]
     Active Substance: DOXORUBICIN
     Indication: EWING^S SARCOMA
     Route: 042
     Dates: start: 20190607, end: 20190720

REACTIONS (1)
  - Ejection fraction decreased [Recovering/Resolving]

NARRATIVE: CASE EVENT DATE: 20190814
